FAERS Safety Report 14069313 (Version 6)
Quarter: 2018Q1

REPORT INFORMATION
  Report Type: Spontaneous
  Country: AU (occurrence: AU)
  Receive Date: 20171010
  Receipt Date: 20180220
  Transmission Date: 20180508
  Serious: Yes (Other)
  Sender: FDA-Public Use
  Company Number: PHHY2017AU147127

PATIENT
  Sex: Female

DRUGS (1)
  1. GENTEAL MILD [Suspect]
     Active Substance: HYPROMELLOSE 2910 (4000 MPA.S)
     Indication: DRY EYE
     Dosage: QD (AT NIGHT)
     Route: 047
     Dates: start: 20170929

REACTIONS (9)
  - Swollen tongue [Recovered/Resolved]
  - Respiratory tract irritation [Unknown]
  - Dry eye [Recovered/Resolved]
  - Eye pain [Unknown]
  - Lip swelling [Recovered/Resolved]
  - Eye irritation [Recovered/Resolved]
  - Product label issue [Unknown]
  - Eyelid margin crusting [Unknown]
  - Paraesthesia oral [Unknown]

NARRATIVE: CASE EVENT DATE: 20170929
